FAERS Safety Report 9735814 (Version 1)
Quarter: 2013Q4

REPORT INFORMATION
  Report Type: Spontaneous
  Country: US (occurrence: US)
  Receive Date: 20131206
  Receipt Date: 20131206
  Transmission Date: 20140711
  Serious: No
  Sender: FDA-Public Use
  Company Number: US-GILEAD-2009-0023744

PATIENT
  Sex: Female
  Weight: 82.1 kg

DRUGS (9)
  1. LETAIRIS [Suspect]
     Indication: PULMONARY ARTERIAL HYPERTENSION
     Route: 048
  2. REVATIO [Concomitant]
  3. OXYGEN [Concomitant]
  4. FERROUS SULFATE [Concomitant]
  5. FOLIC ACID [Concomitant]
  6. VITAMIN C [Concomitant]
  7. LASIX [Concomitant]
  8. POTASSIUM [Concomitant]
  9. VITAMIN D+ CALCIUM [Concomitant]

REACTIONS (3)
  - Nausea [Unknown]
  - Blood count abnormal [Unknown]
  - Dyspnoea [Unknown]
